FAERS Safety Report 14676793 (Version 1)
Quarter: 2018Q1

REPORT INFORMATION
  Report Type: Spontaneous
  Country: KR (occurrence: KR)
  Receive Date: 20180324
  Receipt Date: 20180324
  Transmission Date: 20180509
  Serious: Yes (Other)
  Sender: FDA-Public Use
  Company Number: KR-ROCHE-2090376

PATIENT
  Age: 70 Year
  Sex: Female

DRUGS (3)
  1. PACLITAXEL. [Suspect]
     Active Substance: PACLITAXEL
     Indication: OVARIAN CANCER
     Route: 065
     Dates: start: 20160202
  2. AVASTIN [Suspect]
     Active Substance: BEVACIZUMAB
     Indication: OVARIAN CANCER
     Route: 065
     Dates: start: 20160202
  3. CARBOPLATIN. [Suspect]
     Active Substance: CARBOPLATIN
     Indication: OVARIAN CANCER
     Route: 065
     Dates: start: 20160202

REACTIONS (4)
  - Metastases to lymph nodes [Unknown]
  - Pulmonary embolism [Unknown]
  - Metastases to peritoneum [Unknown]
  - Lymphadenopathy [Recovering/Resolving]
